FAERS Safety Report 23380514 (Version 1)
Quarter: 2024Q1

REPORT INFORMATION
  Report Type: Spontaneous
  Country: DE (occurrence: DE)
  Receive Date: 20240109
  Receipt Date: 20240109
  Transmission Date: 20240410
  Serious: No
  Sender: FDA-Public Use
  Company Number: DE-ALKEM LABORATORIES LIMITED-DE-ALKEM-2023-13312

PATIENT
  Age: 16 Year
  Sex: Female
  Weight: 108 kg

DRUGS (8)
  1. IBUPROFEN [Suspect]
     Active Substance: IBUPROFEN
     Indication: Product used for unknown indication
     Dosage: UNK (TABLET)
     Route: 065
     Dates: start: 20231004
  2. SERTRALINE [Suspect]
     Active Substance: SERTRALINE HYDROCHLORIDE
     Indication: Product used for unknown indication
     Dosage: UNK
     Route: 065
  3. ETHINYL ESTRADIOL\LEVONORGESTREL [Suspect]
     Active Substance: ETHINYL ESTRADIOL\LEVONORGESTREL
     Indication: Product used for unknown indication
     Dosage: UNK
     Route: 065
  4. Novalgin [Concomitant]
     Indication: Product used for unknown indication
     Dosage: UNK
     Route: 065
  5. Pfizer/ BioNTech Comirnaty [Concomitant]
     Indication: Product used for unknown indication
     Dosage: UNK (1. DOSE) (START DATE- SEP-2021)
     Route: 065
  6. Pfizer/ BioNTech Comirnaty [Concomitant]
     Dosage: UNK (1. DOSE) (START DATE- APR-2021)
     Route: 065
  7. Pfizer/ BioNTech Comirnaty [Concomitant]
     Dosage: UNK (2. DOSE) (START DATE- JAN-2022)
     Route: 065
  8. Vigantol 1000 I.E. vitamin [Concomitant]
     Indication: Product used for unknown indication
     Dosage: UNK
     Route: 065

REACTIONS (1)
  - Sleep disorder [Not Recovered/Not Resolved]

NARRATIVE: CASE EVENT DATE: 20231001
